FAERS Safety Report 13115260 (Version 3)
Quarter: 2017Q3

REPORT INFORMATION
  Report Type: Report from Study
  Country: US (occurrence: US)
  Receive Date: 20170113
  Receipt Date: 20170712
  Transmission Date: 20171127
  Serious: Yes (Hospitalization, Other)
  Sender: FDA-Public Use
  Company Number: US-ACTELION-A-US2016-138811

PATIENT
  Age: 84 Year
  Sex: Female

DRUGS (1)
  1. OPSUMIT [Suspect]
     Active Substance: MACITENTAN
     Indication: PULMONARY HYPERTENSION
     Dosage: UNK
     Route: 048
     Dates: start: 20160523

REACTIONS (15)
  - Pain in extremity [Recovered/Resolved]
  - Dyspnoea [Unknown]
  - Melaena [Recovered/Resolved]
  - Peripheral swelling [Recovered/Resolved]
  - Gastric ulcer haemorrhage [Recovered/Resolved]
  - Asthenia [Recovered/Resolved]
  - Lower gastrointestinal haemorrhage [Unknown]
  - Fatigue [Unknown]
  - Anaemia [Recovered/Resolved]
  - Transfusion [Not Recovered/Not Resolved]
  - Urinary tract infection [Recovered/Resolved]
  - Oedema peripheral [Recovered/Resolved]
  - Polyuria [Unknown]
  - Hypotension [Recovered/Resolved]
  - Dizziness [Recovered/Resolved]

NARRATIVE: CASE EVENT DATE: 20160622
